FAERS Safety Report 7649058-7 (Version None)
Quarter: 2011Q3

REPORT INFORMATION
  Report Type: 
  Country: None (occurrence: None)
  Receive Date: 20110726
  Receipt Date: 20110712
  Transmission Date: 20111222
  Serious: Yes (Death)
  Sender: FDA-Public Use
  Company Number: FK201101378

PATIENT
  Age: 69 Year
  Sex: Female

DRUGS (2)
  1. PACLITAXEL [Suspect]
     Indication: BREAST CANCER
     Dosage: 200 MG/M2
  2. DOXORUBICIN HCL [Suspect]
     Indication: BREAST CANCER
     Dosage: 60 MG/M2

REACTIONS (7)
  - CHRONIC LYMPHOCYTIC LEUKAEMIA [None]
  - LYMPHADENOPATHY [None]
  - GENERAL PHYSICAL HEALTH DETERIORATION [None]
  - LYMPHOPROLIFERATIVE DISORDER [None]
  - HEPATOSPLENOMEGALY [None]
  - LEUKOCYTOSIS [None]
  - BICYTOPENIA [None]
